FAERS Safety Report 22587190 (Version 2)
Quarter: 2023Q2

REPORT INFORMATION
  Report Type: Spontaneous
  Country: GB (occurrence: GB)
  Receive Date: 20230612
  Receipt Date: 20230615
  Transmission Date: 20230722
  Serious: Yes (Other)
  Sender: FDA-Public Use
  Company Number: GB-ROCHE-3362829

PATIENT
  Age: 77 Year
  Sex: Male

DRUGS (1)
  1. VABYSMO [Suspect]
     Active Substance: FARICIMAB-SVOA
     Indication: Product used for unknown indication
     Route: 065
     Dates: start: 202211

REACTIONS (7)
  - Ocular hyperaemia [Unknown]
  - Ocular discomfort [Unknown]
  - Iridocyclitis [Unknown]
  - Keratic precipitates [Unknown]
  - Intraocular pressure increased [Unknown]
  - Eye inflammation [Unknown]
  - Uveitis [Unknown]
